FAERS Safety Report 4641257-1 (Version None)
Quarter: 2005Q2

REPORT INFORMATION
  Report Type: 
  Country: None (occurrence: None)
  Receive Date: 20050420
  Receipt Date: 20050420
  Transmission Date: 20051028
  Serious: Yes (Other)
  Sender: FDA-Public Use
  Company Number: None

PATIENT
  Sex: Female
  Weight: 81.6475 kg

DRUGS (2)
  1. OGEN [Suspect]
     Dosage: 1.25 MG PO Q DAILY
     Route: 048
  2. PROZAC [Suspect]
     Dosage: 20 MG PO Q DAY
     Route: 048

REACTIONS (1)
  - DRUG INEFFECTIVE [None]
